FAERS Safety Report 8718794 (Version 2)
Quarter: 2013Q4

REPORT INFORMATION
  Report Type: Spontaneous
  Country: JP (occurrence: JP)
  Receive Date: 20120810
  Receipt Date: 20131031
  Transmission Date: 20140711
  Serious: Yes (Death)
  Sender: FDA-Public Use
  Company Number: JP-009507513-1203USA00361

PATIENT
  Age: 39 Year
  Sex: Female

DRUGS (9)
  1. AMITRIPTYLINE HYDROCHLORIDE [Suspect]
     Indication: PANIC DISORDER
     Dosage: UNK
     Route: 048
  2. DEPROMEL [Suspect]
     Indication: PANIC DISORDER
     Dosage: UNK
     Route: 048
  3. TETRAMIDE TABLETS 10MG [Suspect]
     Indication: PANIC DISORDER
     Dosage: UNK
     Route: 048
  4. SOLANAX [Concomitant]
     Route: 048
  5. DEPAKENE [Concomitant]
     Route: 048
  6. LEXOTAN [Concomitant]
     Route: 048
  7. ROHYPNOL [Concomitant]
     Route: 048
  8. PAXIL [Concomitant]
     Route: 048
  9. VEGETAMIN B [Concomitant]
     Route: 048

REACTIONS (2)
  - Toxicity to various agents [Fatal]
  - Intentional overdose [Fatal]
